FAERS Safety Report 6395221-5 (Version None)
Quarter: 2009Q4

REPORT INFORMATION
  Report Type: 
  Country: None (occurrence: None)
  Receive Date: 20091009
  Receipt Date: 20090930
  Transmission Date: 20100525
  Serious: Yes (Life-Threatening, Other)
  Sender: FDA-Public Use
  Company Number: PR-JNJFOC-20090806144

PATIENT
  Age: 46 Year
  Sex: Male

DRUGS (8)
  1. CHLORZOXAZONE [Suspect]
     Indication: DRUG USE FOR UNKNOWN INDICATION
     Route: 048
  2. DIPHENHYDRAMINE HCL [Suspect]
     Route: 048
  3. DIPHENHYDRAMINE HCL [Suspect]
     Indication: DRUG USE FOR UNKNOWN INDICATION
     Route: 048
  4. HALOPERIDOL [Suspect]
     Indication: DRUG USE FOR UNKNOWN INDICATION
     Route: 048
  5. AMRIX [Suspect]
     Indication: DRUG USE FOR UNKNOWN INDICATION
     Route: 048
  6. DOLAGESIC [Suspect]
     Indication: DRUG USE FOR UNKNOWN INDICATION
     Route: 048
  7. NAPROXEN [Suspect]
     Indication: DRUG USE FOR UNKNOWN INDICATION
     Route: 048
  8. CEPHALEXIN [Suspect]
     Indication: DRUG USE FOR UNKNOWN INDICATION
     Route: 048

REACTIONS (2)
  - METHAEMOGLOBINAEMIA [None]
  - MULTIPLE DRUG OVERDOSE [None]
